FAERS Safety Report 19066995 (Version 1)
Quarter: 2021Q1

REPORT INFORMATION
  Report Type: Spontaneous
  Country: GB (occurrence: GB)
  Receive Date: 20210329
  Receipt Date: 20210329
  Transmission Date: 20210420
  Serious: Yes (Disabling, Other)
  Sender: FDA-Public Use
  Company Number: GB-AUROBINDO-AUR-APL-2021-011799

PATIENT
  Age: 32 Year
  Sex: Female
  Weight: 82.09 kg

DRUGS (2)
  1. FLUOXETINE [Concomitant]
     Active Substance: FLUOXETINE HYDROCHLORIDE
     Indication: ILL-DEFINED DISORDER
     Dosage: UNK
     Route: 065
  2. MIRTAZAPINE. [Suspect]
     Active Substance: MIRTAZAPINE
     Indication: ANXIETY
     Dosage: 15 MILLIGRAM
     Route: 048
     Dates: start: 20210120, end: 20210121

REACTIONS (10)
  - Agitation [Recovering/Resolving]
  - Restless legs syndrome [Recovered/Resolved with Sequelae]
  - Aggression [Recovered/Resolved]
  - Loss of consciousness [Recovered/Resolved with Sequelae]
  - Somnolence [Not Recovered/Not Resolved]
  - Dry mouth [Not Recovered/Not Resolved]
  - Pyrexia [Not Recovered/Not Resolved]
  - Heart rate irregular [Recovered/Resolved with Sequelae]
  - Arthralgia [Not Recovered/Not Resolved]
  - Abnormal dreams [Recovered/Resolved with Sequelae]

NARRATIVE: CASE EVENT DATE: 20210120
